FAERS Safety Report 16979654 (Version 3)
Quarter: 2021Q3

REPORT INFORMATION
  Report Type: Spontaneous
  Country: US (occurrence: US)
  Receive Date: 20191031
  Receipt Date: 20210820
  Transmission Date: 20211014
  Serious: Yes (Hospitalization, Other)
  Sender: FDA-Public Use
  Company Number: US-SA-2019SA296326

PATIENT
  Age: 69 Year
  Sex: Male

DRUGS (2)
  1. CLOPIDOGREL BISULFATE. [Suspect]
     Active Substance: CLOPIDOGREL BISULFATE
     Indication: ANTICOAGULANT THERAPY
     Dosage: UNK, UNK
     Route: 065
  2. ACETYLSALICYLIC ACID [Suspect]
     Active Substance: ASPIRIN
     Indication: ANTICOAGULANT THERAPY
     Dosage: UNK UNK, UNK
     Route: 065

REACTIONS (8)
  - Hypoxia [Unknown]
  - Cough [Unknown]
  - Lung opacity [Unknown]
  - Pyrexia [Unknown]
  - Dyspnoea [Unknown]
  - Tachypnoea [Unknown]
  - Pulmonary alveolar haemorrhage [Recovering/Resolving]
  - Parainfluenzae virus infection [Unknown]
